FAERS Safety Report 8575378-8 (Version None)
Quarter: 2012Q3

REPORT INFORMATION
  Report Type: 
  Country: None (occurrence: None)
  Receive Date: 20120807
  Receipt Date: 20120803
  Transmission Date: 20120928
  Serious: No
  Sender: FDA-Public Use
  Company Number: US-PFIZER INC-2012189452

PATIENT
  Age: 53 Year
  Sex: Male
  Weight: 64.85 kg

DRUGS (2)
  1. ATORVASTATIN CALCIUM [Suspect]
     Indication: BLOOD CHOLESTEROL INCREASED
     Dosage: 40 MG, DAILY
     Route: 048
     Dates: start: 20120701, end: 20120701
  2. ASCORBIC ACID [Concomitant]
     Dosage: UNK

REACTIONS (3)
  - MUSCLE DISORDER [None]
  - DIARRHOEA [None]
  - RASH [None]
